FAERS Safety Report 9282797 (Version 2)
Quarter: 2013Q2

REPORT INFORMATION
  Report Type: Spontaneous
  Country: US (occurrence: None)
  Receive Date: 20101130
  Receipt Date: 20130419
  Transmission Date: 20140414
  Serious: Yes (Hospitalization)
  Sender: FDA-Public Use
  Company Number: 54973 RSAE103110MP-001

PATIENT
  Age: 17 Month
  Sex: Female
  Weight: 13.15 kg

DRUGS (4)
  1. HYLAND^S TEETHING TABLETS [Suspect]
     Indication: TEETHING
     Dosage: 3  TABS  X  1-3  X/ DAY
  2. MOTRIN [Concomitant]
  3. TYLENOL [Concomitant]
  4. BENADRYL [Concomitant]

REACTIONS (1)
  - Febrile convulsion [None]
